FAERS Safety Report 24718365 (Version 1)
Quarter: 2024Q4

REPORT INFORMATION
  Report Type: Spontaneous
  Country: IN (occurrence: IN)
  Receive Date: 20241210
  Receipt Date: 20241210
  Transmission Date: 20250115
  Serious: Yes (Other)
  Sender: PURDUE
  Company Number: IN-MLMSERVICE-20241125-PI270356-00073-1

PATIENT
  Age: 24 Year
  Sex: Male

DRUGS (2)
  1. BUPRENORPHINE [Suspect]
     Active Substance: BUPRENORPHINE
     Indication: Product used for unknown indication
     Dosage: SELF-INJECTED A SUSPENSION OF BUPRENORPHINE (TABLET CRUSHED IN DRINKING WATER) INTO THE UPPER LATERA
     Route: 065
  2. BUPRENORPHINE [Suspect]
     Active Substance: BUPRENORPHINE
     Indication: Product used for unknown indication
     Dosage: SELF-INJECTED A SUSPENSION OF BUPRENORPHINE (TABLET CRUSHED IN DRINKING WATER) INTO THE UPPER LATERA
     Route: 065

REACTIONS (4)
  - Embolia cutis medicamentosa [Unknown]
  - Incorrect route of product administration [Unknown]
  - Wrong technique in product usage process [Unknown]
  - Drug abuse [Unknown]
